FAERS Safety Report 24544588 (Version 1)
Quarter: 2024Q4

REPORT INFORMATION
  Report Type: Spontaneous
  Country: US (occurrence: None)
  Receive Date: 20241023
  Receipt Date: 20241023
  Transmission Date: 20250115
  Serious: No
  Sender: Public
  Company Number: None

PATIENT
  Sex: Male

DRUGS (11)
  1. POMALYST [Suspect]
     Active Substance: POMALIDOMIDE
     Indication: Plasma cell myeloma
     Route: 048
     Dates: start: 20240224
  2. ACETAMIN TAB 325MG [Concomitant]
  3. DARZALEX SOL FASPRO [Concomitant]
  4. KETOCONAZOLE [Concomitant]
     Active Substance: KETOCONAZOLE
  5. KYPROLIS SOL 60MG [Concomitant]
  6. LORATADINE TAB 10MG [Concomitant]
  7. MIRALAX POW 3350 NF [Concomitant]
  8. ONDANSETRON [Concomitant]
     Active Substance: ONDANSETRON
  9. OXYCODONE TAB 10MG [Concomitant]
  10. SENNA-S TAB 8.6-50MG [Concomitant]
  11. TADALAFIL TAB 10MG [Concomitant]

REACTIONS (1)
  - Surgery [None]
